FAERS Safety Report 7335102-3 (Version None)
Quarter: 2011Q1

REPORT INFORMATION
  Report Type: 
  Country: None (occurrence: None)
  Receive Date: 20110307
  Receipt Date: 20100201
  Transmission Date: 20110831
  Serious: Yes (Death, Other)
  Sender: FDA-Public Use
  Company Number: US-BAYER-200939914NA

PATIENT
  Sex: Female
  Weight: 104.31 kg

DRUGS (40)
  1. ACETYLSALICYLIC ACID (} 100 MG, FAST RELEASE) [Suspect]
     Dosage: 325 MG, UNK
     Route: 048
  2. ENOXAPARIN [Concomitant]
     Dosage: UNK
     Dates: start: 20030421
  3. SUFENTANIL CITRATE [Concomitant]
     Dosage: UNK
     Route: 042
     Dates: start: 20030602
  4. PLASMA [Concomitant]
     Dosage: 6 U, UNK
     Route: 042
     Dates: start: 20030602
  5. DIFLUCAN [Concomitant]
  6. CORDARONE [Concomitant]
  7. PERCOCET [Concomitant]
  8. LIPITOR [Concomitant]
     Dosage: 10 MG, UNK
     Route: 048
  9. COZAAR [Concomitant]
     Dosage: 50 MG, UNK
     Route: 048
  10. BACTRIM [Concomitant]
     Indication: URINARY TRACT INFECTION
     Dosage: UNK
     Route: 048
     Dates: start: 20030419
  11. ZESTRIL [Concomitant]
     Dosage: 20 MG, UNK
     Route: 048
     Dates: start: 20030419
  12. LEVOPHED [Concomitant]
     Dosage: UNK
     Route: 042
     Dates: start: 20030602
  13. NITROGLYCERIN [Concomitant]
     Dosage: UNK
     Route: 042
     Dates: start: 20030602
  14. TRASYLOL [Suspect]
     Indication: CORONARY ARTERY BYPASS
     Dosage: 1 ML, UNK
     Route: 042
     Dates: start: 20030602, end: 20030602
  15. PLAVIX [Concomitant]
     Dosage: 75 MG, UNK
     Route: 048
  16. PRIMACOR [Concomitant]
     Dosage: 15 UNK, UNK
     Route: 042
     Dates: start: 20030602
  17. AMIODARONE [Concomitant]
     Dosage: UNK
     Route: 042
     Dates: start: 20030602
  18. PLATELETS [Concomitant]
     Dosage: 24 U, UNK
     Route: 042
     Dates: start: 20030602
  19. PROTONIX [Concomitant]
  20. NYSTATIN [Concomitant]
  21. RED BLOOD CELLS [Concomitant]
     Dosage: 2 U, UNK
     Route: 042
     Dates: start: 20030602
  22. BUMEX [Concomitant]
  23. CARDIZEM [Concomitant]
  24. PROTAMINE SULFATE [Concomitant]
     Dosage: UNK
     Route: 042
     Dates: start: 20030602
  25. SODIUM BICARBONATE [Concomitant]
     Dosage: 1 UNK, UNK
     Route: 042
     Dates: start: 20030602
  26. TRASYLOL [Suspect]
     Indication: AORTIC VALVE REPLACEMENT
  27. ENALAPRIL MALEATE [Concomitant]
  28. ATENOLOL [Concomitant]
     Dosage: 50 MG, UNK
     Route: 048
  29. HYDROCHLOROTHIAZIDE [Concomitant]
     Dosage: 25 MG, UNK
     Route: 048
  30. CARDIOPLEGIA [Concomitant]
     Dosage: UNK
     Route: 042
     Dates: start: 20030602
  31. ANCEF [Concomitant]
     Dosage: 1 G, UNK
     Route: 042
     Dates: start: 20030602
  32. CRYOPRECIPITATES [Concomitant]
     Dosage: 10 U, UNK
     Route: 042
     Dates: start: 20030602
  33. SALINE [Concomitant]
     Dosage: UNK
     Route: 042
     Dates: start: 20030602
  34. NEO-SYNEPHRINOL [Concomitant]
     Dosage: UNK
     Route: 042
     Dates: start: 20030602
  35. FORANE [Concomitant]
     Dosage: UNK
     Route: 042
     Dates: start: 20030602
  36. PAVERONE [Concomitant]
     Dosage: UNK
     Route: 042
     Dates: start: 20030602
  37. APROTININ [Concomitant]
     Dosage: UNK
     Route: 042
     Dates: start: 20030602
  38. VERSED [Concomitant]
     Dosage: 10 MG, UNK
     Route: 042
     Dates: start: 20030602
  39. PROPOFOL [Concomitant]
     Dosage: UNK
     Route: 042
     Dates: start: 20030602
  40. HEPARIN [Concomitant]
     Dosage: UNK
     Route: 042
     Dates: start: 20030602

REACTIONS (16)
  - DEATH [None]
  - STRESS [None]
  - PAIN [None]
  - UNEVALUABLE EVENT [None]
  - RENAL IMPAIRMENT [None]
  - RENAL FAILURE [None]
  - ANXIETY [None]
  - ANHEDONIA [None]
  - PNEUMONIA [None]
  - RENAL INJURY [None]
  - CARDIAC FIBRILLATION [None]
  - EMOTIONAL DISTRESS [None]
  - RESPIRATORY FAILURE [None]
  - FEAR [None]
  - INJURY [None]
  - POST PROCEDURAL CELLULITIS [None]
